FAERS Safety Report 8286000-2 (Version None)
Quarter: 2012Q2

REPORT INFORMATION
  Report Type: 
  Country: None (occurrence: None)
  Receive Date: 20120416
  Receipt Date: 20120406
  Transmission Date: 20120825
  Serious: Yes (Death)
  Sender: FDA-Public Use
  Company Number: US-BIOGENIDEC-2012BI007350

PATIENT
  Age: 44 Year
  Sex: Male

DRUGS (1)
  1. TYSABRI [Suspect]
     Indication: MULTIPLE SCLEROSIS
     Route: 042
     Dates: start: 20070517, end: 20120119

REACTIONS (4)
  - INTERVERTEBRAL DISC PROTRUSION [None]
  - DEATH [None]
  - PAIN [None]
  - MULTIPLE SCLEROSIS RELAPSE [None]
